FAERS Safety Report 19114158 (Version 1)
Quarter: 2021Q2

REPORT INFORMATION
  Report Type: Spontaneous
  Country: US (occurrence: US)
  Receive Date: 20210409
  Receipt Date: 20210409
  Transmission Date: 20210717
  Serious: No
  Sender: FDA-Public Use
  Company Number: US-GLENMARK PHARMACEUTICALS-2021GMK052112

PATIENT

DRUGS (3)
  1. MUPIROCIN OINTMENT USP, 2% [Suspect]
     Active Substance: MUPIROCIN
     Indication: ACNE
     Dosage: UNK, 2 OR 3 TIMES A DAY
     Route: 054
  2. MUPIROCIN OINTMENT USP, 2% [Suspect]
     Active Substance: MUPIROCIN
     Indication: HAEMORRHAGE
  3. MUPIROCIN OINTMENT USP, 2% [Suspect]
     Active Substance: MUPIROCIN
     Indication: WOUND

REACTIONS (8)
  - Product use issue [Unknown]
  - Haemorrhoids [Recovered/Resolved]
  - Drug ineffective for unapproved indication [Unknown]
  - Renal disorder [Unknown]
  - Constipation [Unknown]
  - Wrong technique in product usage process [Unknown]
  - Prostatic disorder [Unknown]
  - Product use in unapproved indication [Unknown]
